FAERS Safety Report 11874381 (Version 1)
Quarter: 2015Q4

REPORT INFORMATION
  Report Type: Spontaneous
  Country: US (occurrence: US)
  Receive Date: 20151229
  Receipt Date: 20151229
  Transmission Date: 20160305
  Serious: Yes (Hospitalization)
  Sender: FDA-Public Use
  Company Number: US-CIPLA LTD.-2015US09681

PATIENT

DRUGS (1)
  1. ALENDRONATE [Suspect]
     Active Substance: ALENDRONATE SODIUM
     Indication: OSTEOPOROSIS
     Dosage: 70 MG, ONE TABLE ONCE A WEEK ON EVERY THURDAY
     Route: 048
     Dates: start: 2014, end: 20151210

REACTIONS (2)
  - Blood sodium decreased [Unknown]
  - Dizziness [Unknown]
